FAERS Safety Report 7349566-2 (Version None)
Quarter: 2011Q1

REPORT INFORMATION
  Report Type: 
  Country: None (occurrence: None)
  Receive Date: 20110314
  Receipt Date: 20110304
  Transmission Date: 20110831
  Serious: Yes (Life-Threatening, Hospitalization)
  Sender: FDA-Public Use
  Company Number: US-CELGENEUS-163-C5013-11021253

PATIENT
  Sex: Male
  Weight: 85.352 kg

DRUGS (14)
  1. ASPIRIN [Concomitant]
     Dosage: 81 MILLIGRAM
     Route: 048
     Dates: start: 20040201
  2. CALCIUM CHLORIDE [Concomitant]
     Dosage: 1 GRAM
     Route: 041
     Dates: start: 20110206
  3. SIMVASTATIN [Concomitant]
     Dosage: 80 MILLIGRAM
     Route: 048
     Dates: start: 20070101
  4. NEXIUM [Concomitant]
     Route: 041
  5. FLOMAX [Concomitant]
     Dosage: .4 MILLIGRAM
     Route: 048
     Dates: start: 20080101
  6. CC-5013\PLACEBO [Suspect]
     Indication: PROSTATE CANCER
     Dosage: 25 MILLIGRAM
     Route: 048
     Dates: start: 20110125, end: 20110206
  7. NEXIUM [Concomitant]
     Dosage: 40 MILLIGRAM
     Route: 048
     Dates: start: 20060101
  8. RAMIPRIL [Concomitant]
     Indication: HYPERTENSION
     Dosage: 10 MILLIGRAM
     Route: 048
     Dates: start: 20080101
  9. LUPRON [Concomitant]
     Indication: PROSTATE CANCER
     Route: 065
     Dates: start: 20061201
  10. PREDNISONE [Suspect]
     Indication: PROSTATE CANCER
     Dosage: 5 MILLIGRAM
     Route: 065
     Dates: start: 20110125, end: 20110206
  11. ZETIA [Concomitant]
     Dosage: 10 MILLIGRAM
     Route: 048
     Dates: start: 20070101
  12. CALCIUM PLUS VIT D3 [Concomitant]
     Dosage: 600 MILLIGRAM
     Route: 048
     Dates: start: 20090601
  13. DOCETAXEL [Suspect]
     Indication: PROSTATE CANCER
     Route: 065
     Dates: start: 20110125
  14. CALCIUM CHLORIDE [Concomitant]

REACTIONS (3)
  - GASTROINTESTINAL HAEMORRHAGE [None]
  - ANAEMIA [None]
  - HYPOVOLAEMIC SHOCK [None]
